FAERS Safety Report 12353248 (Version 1)
Quarter: 2016Q2

REPORT INFORMATION
  Report Type: Report from Study
  Country: BR (occurrence: BR)
  Receive Date: 20160510
  Receipt Date: 20160510
  Transmission Date: 20160815
  Serious: Yes (Other)
  Sender: FDA-Public Use
  Company Number: PHHY2016BR062315

PATIENT
  Sex: Female
  Weight: 54 kg

DRUGS (2)
  1. DIOVAN HCT [Suspect]
     Active Substance: HYDROCHLOROTHIAZIDE\VALSARTAN
     Dosage: 2 DF (80 MG VALSARTAN/12.5 MG HYDROCHLOROTHIAZIDE), QD (IN THE MORNING)
     Route: 048
  2. DIOVAN HCT [Suspect]
     Active Substance: HYDROCHLOROTHIAZIDE\VALSARTAN
     Indication: HYPERTENSION
     Dosage: 1 DF (80 MG VALSARTAN/12.5 MG HYDROCHLOROTHIAZIDE), QD (1 TABLET IN THE MORNING)
     Route: 048

REACTIONS (8)
  - Discomfort [Recovered/Resolved]
  - Gait disturbance [Recovered/Resolved]
  - Cerebral ischaemia [Unknown]
  - Blood pressure inadequately controlled [Unknown]
  - Transient ischaemic attack [Unknown]
  - Dysarthria [Recovered/Resolved]
  - Malaise [Unknown]
  - Blood pressure increased [Unknown]
